FAERS Safety Report 13296311 (Version 1)
Quarter: 2017Q1

REPORT INFORMATION
  Report Type: Spontaneous
  Country: US (occurrence: US)
  Receive Date: 20170304
  Receipt Date: 20170304
  Transmission Date: 20170428
  Serious: No
  Sender: FDA-Public Use
  Company Number: US-SHIRE-US201702800

PATIENT
  Sex: Female

DRUGS (1)
  1. XIIDRA [Suspect]
     Active Substance: LIFITEGRAST
     Indication: PRODUCT USED FOR UNKNOWN INDICATION
     Dosage: UNK, UNKNOWN
     Route: 047
     Dates: start: 201702

REACTIONS (4)
  - Feeling abnormal [Unknown]
  - Instillation site irritation [Unknown]
  - Inappropriate schedule of drug administration [Unknown]
  - Instillation site pruritus [Unknown]

NARRATIVE: CASE EVENT DATE: 201702
